FAERS Safety Report 5836772-9 (Version None)
Quarter: 2008Q3

REPORT INFORMATION
  Report Type: 
  Country: None (occurrence: None)
  Receive Date: 20080805
  Receipt Date: 20080725
  Transmission Date: 20090109
  Serious: Yes (Death)
  Sender: FDA-Public Use
  Company Number: 2008AL004436

PATIENT
  Age: 84 Year
  Sex: Male
  Weight: 85.2762 kg

DRUGS (10)
  1. DIGOXIN [Suspect]
     Indication: CARDIAC FAILURE CONGESTIVE
     Dosage: 0.25 MG, DAILY, PO; 0.25MG, DAILY, PO
     Route: 048
     Dates: start: 20061201, end: 20070201
  2. DIGOXIN [Suspect]
     Indication: CARDIAC FAILURE CONGESTIVE
     Dosage: 0.25 MG, DAILY, PO; 0.25MG, DAILY, PO
     Route: 048
     Dates: start: 20070601, end: 20070630
  3. ISOSORBIDE [Concomitant]
  4. LISINOPRIL [Concomitant]
  5. FUROSEMIDE [Concomitant]
  6. ASPIRIN [Concomitant]
  7. ARICEPT [Concomitant]
  8. ATENOLOL [Concomitant]
  9. COUMADIN [Concomitant]
  10. KALOR-CON [Concomitant]

REACTIONS (4)
  - ASTHENIA [None]
  - CARDIAC PACEMAKER INSERTION [None]
  - FLUID RETENTION [None]
  - MALAISE [None]
